FAERS Safety Report 9241783 (Version 3)
Quarter: 2014Q4

REPORT INFORMATION
  Report Type: Spontaneous
  Country: US (occurrence: US)
  Receive Date: 20130419
  Receipt Date: 20141127
  Transmission Date: 20150529
  Serious: No
  Sender: FDA-Public Use
  Company Number: US-009507513-1304USA008707

PATIENT
  Sex: Female
  Weight: 63.95 kg

DRUGS (2)
  1. IMPLANON [Suspect]
     Active Substance: ETONOGESTREL
     Indication: CONTRACEPTION
     Dosage: 1 ROD
     Route: 059
     Dates: start: 20110913, end: 20130514
  2. IMPLANON [Suspect]
     Active Substance: ETONOGESTREL
     Indication: MENSTRUAL DISORDER

REACTIONS (4)
  - Product quality issue [Unknown]
  - No adverse event [Unknown]
  - Medical device complication [Unknown]
  - Device breakage [Recovered/Resolved]
